FAERS Safety Report 4417968-X (Version None)
Quarter: 2004Q3

REPORT INFORMATION
  Report Type: 
  Country: None (occurrence: None)
  Receive Date: 20040803
  Receipt Date: 20040720
  Transmission Date: 20050211
  Serious: Yes (Disabling)
  Sender: FDA-Public Use
  Company Number: 2004IM000312

PATIENT
  Age: 31 Year
  Sex: Male

DRUGS (3)
  1. ADVAFERON (A643_INTERFERON ALFACON-1) [Suspect]
     Indication: HEPATITIS C
     Dosage: 18 MU; QOD; SUBCUTANEOUS
     Route: 058
     Dates: start: 20020129, end: 20020429
  2. URSODEOXYCHOLIC ACID [Concomitant]
  3. TEPRENONE [Concomitant]

REACTIONS (4)
  - ERYTHEMA NODOSUM [None]
  - PERIPHERAL CIRCULATORY FAILURE [None]
  - SKIN HYPERTROPHY [None]
  - VASCULAR OCCLUSION [None]
